FAERS Safety Report 22237282 (Version 1)
Quarter: 2023Q2

REPORT INFORMATION
  Report Type: Report from Study
  Country: GB (occurrence: None)
  Receive Date: 20230421
  Receipt Date: 20230421
  Transmission Date: 20230721
  Serious: Yes (Other)
  Sender: FDA-Public Use
  Company Number: GB-Merck Healthcare KGaA-9396739

PATIENT
  Sex: Female

DRUGS (2)
  1. MAVENCLAD [Suspect]
     Active Substance: CLADRIBINE
     Indication: Multiple sclerosis
     Dosage: YEAR ONE MONTH ONE THERAPY.
     Route: 048
     Dates: start: 20220314
  2. MAVENCLAD [Suspect]
     Active Substance: CLADRIBINE
     Dosage: YEAR ONE MONTH TWO THERAPY: TWO TABLETS ON DAYS 1 TO 2 AND ONE TABLET ON DAYS 3 TO 5.
     Route: 048

REACTIONS (3)
  - Spinal cord compression [Unknown]
  - Nerve compression [Unknown]
  - Synovial cyst [Unknown]
